FAERS Safety Report 5284670-4 (Version None)
Quarter: 2007Q1

REPORT INFORMATION
  Report Type: 
  Country: None (occurrence: None)
  Receive Date: 20061229
  Receipt Date: 20060331
  Transmission Date: 20070707
  Serious: Yes (Other)
  Sender: FDA-Public Use
  Company Number: PHEH2005US09909

PATIENT
  Age: 42 Year
  Sex: Male

DRUGS (25)
  1. CLOZARIL [Suspect]
     Indication: PSYCHOTIC DISORDER
     Dosage: 300 MG QAM, 200 MG QPHS
  2. LITHIUM CARBONATE [Concomitant]
  3. RISPERDAL [Concomitant]
  4. BETAMETHASONE VALERATE W/CLOTRIMAZOLE [Concomitant]
  5. HYDROXYZINE [Concomitant]
  6. FERROMAX (FERROUS SULFATE) [Concomitant]
  7. PLENDIL [Concomitant]
  8. CLARITIN [Concomitant]
  9. MULTIVITAMINS AND IRON (NO INGREDIENTS/SUBSTANCES) [Concomitant]
  10. PREVACID [Concomitant]
  11. LOTRISONE [Concomitant]
  12. DOCUSATE CALCIUM CAPSULE [Concomitant]
  13. NAPROXEN [Concomitant]
  14. TRIAMCINOLONE ACETONIDE W/NYSTATIN CREAM [Concomitant]
  15. NORVASC [Concomitant]
  16. TRIMATERENE AND HYDROCHLOROTHIAZID [Concomitant]
  17. PROTONIX [Concomitant]
  18. CLARINEX (LORATADINE, PSEUDOEPHEDRINE SULFATE) [Concomitant]
  19. SELENIUM SULFIDE SHAMPOO [Concomitant]
  20. ATARAX [Concomitant]
  21. SERENTIL [Concomitant]
  22. LITHOBD (LITHIUM CARBONATE) [Concomitant]
  23. DILANTIN [Concomitant]
  24. VASOTEC [Concomitant]
  25. TRAZODONE HCL [Concomitant]

REACTIONS (18)
  - ANAEMIA [None]
  - ANOREXIA [None]
  - ARTHRALGIA [None]
  - ARTHRITIS [None]
  - BLOOD CHOLESTEROL INCREASED [None]
  - CONTUSION [None]
  - CONVULSION [None]
  - DERMATITIS [None]
  - DYSTONIA [None]
  - GOUT [None]
  - HYPERTENSION [None]
  - INFECTION [None]
  - INSOMNIA [None]
  - NAUSEA [None]
  - RASH [None]
  - TREMOR [None]
  - VERTIGO [None]
  - VOMITING [None]
